FAERS Safety Report 10181579 (Version 1)
Quarter: 2014Q2

REPORT INFORMATION
  Report Type: Report from Study
  Country: DE (occurrence: DE)
  Receive Date: 20140519
  Receipt Date: 20140519
  Transmission Date: 20141212
  Serious: Yes (Other)
  Sender: FDA-Public Use
  Company Number: DE-GLAXOSMITHKLINE-B0994326A

PATIENT
  Sex: 0

DRUGS (1)
  1. ELTROMBOPAG [Suspect]
     Indication: IMMUNE THROMBOCYTOPENIC PURPURA
     Route: 065

REACTIONS (2)
  - Cardiac operation [Unknown]
  - Drug ineffective [Unknown]
